FAERS Safety Report 18357330 (Version 1)
Quarter: 2020Q4

REPORT INFORMATION
  Report Type: Report from Study
  Country: US (occurrence: US)
  Receive Date: 20201007
  Receipt Date: 20201007
  Transmission Date: 20210114
  Serious: Yes (Hospitalization)
  Sender: FDA-Public Use
  Company Number: US-JNJFOC-20200951033

PATIENT
  Age: 45 Year
  Sex: Male

DRUGS (1)
  1. STELARA [Suspect]
     Active Substance: USTEKINUMAB
     Indication: CROHN^S DISEASE
     Route: 058
     Dates: start: 20190105

REACTIONS (5)
  - Product use issue [Unknown]
  - Crohn^s disease [Unknown]
  - Off label use [Unknown]
  - Surgery [Unknown]
  - Pneumonia [Unknown]

NARRATIVE: CASE EVENT DATE: 20190105
